FAERS Safety Report 15234106 (Version 1)
Quarter: 2018Q3

REPORT INFORMATION
  Report Type: Report from Study
  Country: US (occurrence: US)
  Receive Date: 20180802
  Receipt Date: 20180802
  Transmission Date: 20181010
  Serious: Yes (Hospitalization)
  Sender: FDA-Public Use
  Company Number: US-BIOGEN-2017BI00483299

PATIENT
  Age: 20 Year
  Sex: Female

DRUGS (2)
  1. TYSABRI [Suspect]
     Active Substance: NATALIZUMAB
     Indication: MULTIPLE SCLEROSIS
     Route: 065
     Dates: start: 20151120, end: 20170922
  2. TYSABRI [Suspect]
     Active Substance: NATALIZUMAB
     Route: 065
     Dates: start: 20171020, end: 20171020

REACTIONS (4)
  - Nausea [Unknown]
  - Peripheral swelling [Unknown]
  - Multiple sclerosis relapse [Unknown]
  - Vomiting [Unknown]

NARRATIVE: CASE EVENT DATE: 20171009
